FAERS Safety Report 18065146 (Version 1)
Quarter: 2020Q3

REPORT INFORMATION
  Report Type: Spontaneous
  Country: US (occurrence: US)
  Receive Date: 20200724
  Receipt Date: 20200724
  Transmission Date: 20201103
  Serious: No
  Sender: FDA-Public Use
  Company Number: US-BAYER-2020-150174

PATIENT
  Sex: Male

DRUGS (2)
  1. ALEVE [Suspect]
     Active Substance: NAPROXEN SODIUM
     Indication: PAIN
     Dosage: 1 DF
     Route: 048
  2. TYLENOL [Suspect]
     Active Substance: ACETAMINOPHEN

REACTIONS (2)
  - Therapeutic response shortened [Unknown]
  - Drug ineffective [Unknown]
